FAERS Safety Report 6894101-6 (Version None)
Quarter: 2010Q3

REPORT INFORMATION
  Report Type: 
  Country: None (occurrence: None)
  Receive Date: 20100802
  Receipt Date: 20100722
  Transmission Date: 20110219
  Serious: Yes (Other)
  Sender: FDA-Public Use
  Company Number: US-JNJFOC-20100503546

PATIENT
  Sex: Female

DRUGS (4)
  1. FENTANYL CITRATE [Suspect]
     Indication: PAIN
     Route: 062
  2. FENTANYL CITRATE [Suspect]
     Route: 062
  3. FLEXERIL [Concomitant]
     Indication: MUSCLE RELAXANT THERAPY
     Route: 048
  4. FOSAMAX [Concomitant]
     Indication: OSTEOPOROSIS
     Route: 048

REACTIONS (15)
  - APHONIA [None]
  - BLOOD CHOLESTEROL INCREASED [None]
  - CONSTIPATION [None]
  - DRY MOUTH [None]
  - FEAR [None]
  - HALLUCINATION, VISUAL [None]
  - HYPERTENSION [None]
  - HYPOTENSION [None]
  - LIMB INJURY [None]
  - MALAISE [None]
  - SOMNOLENCE [None]
  - STUPOR [None]
  - TRANSIENT ISCHAEMIC ATTACK [None]
  - VOMITING [None]
  - WEIGHT INCREASED [None]
